FAERS Safety Report 23007700 (Version 2)
Quarter: 2025Q2

REPORT INFORMATION
  Report Type: Spontaneous
  Country: DE (occurrence: DE)
  Receive Date: 20230929
  Receipt Date: 20250427
  Transmission Date: 20250717
  Serious: Yes (Death, Other)
  Sender: AUROBINDO
  Company Number: DE-002147023-NVSC2022DE156387

PATIENT
  Age: 34 Year
  Sex: Male

DRUGS (18)
  1. MOXIFLOXACIN [Suspect]
     Active Substance: MOXIFLOXACIN
     Indication: Tuberculosis
     Route: 065
  2. MOXIFLOXACIN [Suspect]
     Active Substance: MOXIFLOXACIN
     Dosage: 800 MILLIGRAM, ONCE A DAY
     Route: 065
  3. AMOXICILLIN\CLAVULANIC ACID [Suspect]
     Active Substance: AMOXICILLIN\CLAVULANIC ACID
     Indication: Tuberculosis
     Dosage: 7.2 GRAM, ONCE A DAY
     Route: 065
  4. AMOXICILLIN\CLAVULANIC ACID [Suspect]
     Active Substance: AMOXICILLIN\CLAVULANIC ACID
     Route: 065
  5. BEDAQUILINE [Suspect]
     Active Substance: BEDAQUILINE
     Indication: Tuberculosis
     Route: 065
  6. BEDAQUILINE [Suspect]
     Active Substance: BEDAQUILINE
     Route: 065
  7. BEDAQUILINE [Suspect]
     Active Substance: BEDAQUILINE
     Route: 065
  8. CLOFAZIMINE [Suspect]
     Active Substance: CLOFAZIMINE
     Indication: Tuberculosis
     Route: 065
     Dates: start: 202012
  9. DELAMANID [Suspect]
     Active Substance: DELAMANID
     Indication: Tuberculosis
     Route: 065
  10. DELAMANID [Suspect]
     Active Substance: DELAMANID
     Route: 065
     Dates: start: 202012
  11. MEROPENEM [Suspect]
     Active Substance: MEROPENEM
     Indication: Tuberculosis
     Dosage: 9.6 GRAM, ONCE A DAY
  12. MEROPENEM [Suspect]
     Active Substance: MEROPENEM
     Route: 065
  13. MEROPENEM [Suspect]
     Active Substance: MEROPENEM
     Route: 065
     Dates: start: 202012
  14. PARA-AMINOSALICYLIC ACID [Suspect]
     Active Substance: AMINOSALICYLIC ACID
     Indication: Tuberculosis
     Route: 065
     Dates: start: 202012
  15. PRETOMANID [Suspect]
     Active Substance: PRETOMANID
     Indication: Tuberculosis
     Route: 065
  16. TERIZIDONE [Suspect]
     Active Substance: TERIZIDONE
     Indication: Tuberculosis
     Route: 065
  17. TERIZIDONE [Suspect]
     Active Substance: TERIZIDONE
     Route: 065
     Dates: start: 202012
  18. VERAPAMIL [Suspect]
     Active Substance: VERAPAMIL HYDROCHLORIDE
     Indication: Tuberculosis
     Route: 065
     Dates: start: 202012

REACTIONS (6)
  - Pneumonia bacterial [Fatal]
  - Electrocardiogram QT prolonged [Unknown]
  - Drug resistance [Unknown]
  - Drug ineffective [Unknown]
  - Product use in unapproved indication [Unknown]
  - Off label use [Unknown]
